FAERS Safety Report 5816116-9 (Version None)
Quarter: 2008Q3

REPORT INFORMATION
  Report Type: 
  Country: None (occurrence: None)
  Receive Date: 20080717
  Receipt Date: 20080717
  Transmission Date: 20090109
  Serious: Yes (Other)
  Sender: FDA-Public Use
  Company Number: None

PATIENT
  Sex: Female
  Weight: 8.17 kg

DRUGS (5)
  1. GAMMAGARD [Suspect]
     Indication: KAWASAKI'S DISEASE
     Dosage: 16.34 GRAMS Q48H X 2 DOSES IV
     Route: 042
     Dates: start: 20080712, end: 20080714
  2. ASPIRIN [Concomitant]
  3. ACETAMINOPHEN [Concomitant]
  4. DIPHENHYDRAMINE HCL [Concomitant]
  5. ALBUTEROL [Concomitant]

REACTIONS (3)
  - HAEMATOCRIT DECREASED [None]
  - HAEMOLYSIS [None]
  - WHITE BLOOD CELL COUNT INCREASED [None]
